FAERS Safety Report 22054038 (Version 1)
Quarter: 2023Q1

REPORT INFORMATION
  Report Type: Spontaneous
  Country: US (occurrence: US)
  Receive Date: 20230302
  Receipt Date: 20230302
  Transmission Date: 20230418
  Serious: No
  Sender: FDA-Public Use
  Company Number: US-NOVOPROD-971891

PATIENT
  Sex: Female

DRUGS (2)
  1. SAXENDA [Suspect]
     Active Substance: LIRAGLUTIDE
     Route: 058
  2. SAXENDA [Suspect]
     Active Substance: LIRAGLUTIDE
     Indication: Product used for unknown indication
     Dosage: 0.6 MG
     Route: 058

REACTIONS (4)
  - Discomfort [Not Recovered/Not Resolved]
  - Palpitations [Unknown]
  - Dizziness [Unknown]
  - Expired product administered [Not Recovered/Not Resolved]
